FAERS Safety Report 7419263-3 (Version None)
Quarter: 2011Q2

REPORT INFORMATION
  Report Type: 
  Country: None (occurrence: None)
  Receive Date: 20110415
  Receipt Date: 20110406
  Transmission Date: 20111010
  Serious: Yes (Hospitalization)
  Sender: FDA-Public Use
  Company Number: US-ASTRAZENECA-2011SE19805

PATIENT
  Age: 22 Year
  Sex: Female

DRUGS (4)
  1. HYDROXYZINE [Concomitant]
     Dates: start: 20101001
  2. SEROQUEL [Suspect]
     Route: 048
     Dates: start: 20101201
  3. DEPAKOTE [Concomitant]
     Dates: start: 20101001
  4. SEROQUEL [Suspect]
     Indication: BIPOLAR DISORDER
     Route: 048
     Dates: start: 20101001

REACTIONS (3)
  - MENTAL DISORDER [None]
  - INSOMNIA [None]
  - WEIGHT DECREASED [None]
